APPROVED DRUG PRODUCT: IBUPROFEN
Active Ingredient: IBUPROFEN
Strength: EQ 200MG FREE ACID AND POTASSIUM SALT
Dosage Form/Route: CAPSULE;ORAL
Application: A215777 | Product #001
Applicant: AUROBINDO PHARMA LTD
Approved: Sep 14, 2023 | RLD: No | RS: No | Type: OTC